FAERS Safety Report 16025774 (Version 2)
Quarter: 2019Q3

REPORT INFORMATION
  Report Type: Spontaneous
  Country: US (occurrence: US)
  Receive Date: 20190302
  Receipt Date: 20190930
  Transmission Date: 20191004
  Serious: Yes (Hospitalization, Other)
  Sender: FDA-Public Use
  Company Number: US-SUN PHARMACEUTICAL INDUSTRIES LTD-2019R1-200530

PATIENT
  Age: 47 Year
  Sex: Male

DRUGS (1)
  1. BACLOFEN. [Suspect]
     Active Substance: BACLOFEN
     Indication: BLADDER SPASM
     Dosage: 10 MILLIGRAM, TID
     Route: 065

REACTIONS (6)
  - Psychotic disorder [Recovering/Resolving]
  - Paranoia [Recovering/Resolving]
  - Hallucination, auditory [Recovering/Resolving]
  - Drug withdrawal syndrome [Unknown]
  - Respiratory failure [Unknown]
  - Hallucination, visual [Recovering/Resolving]
